FAERS Safety Report 19150910 (Version 1)
Quarter: 2021Q2

REPORT INFORMATION
  Report Type: Spontaneous
  Country: US (occurrence: US)
  Receive Date: 20210419
  Receipt Date: 20210419
  Transmission Date: 20210717
  Serious: No
  Sender: FDA-Public Use
  Company Number: US-BIOGEN-2021BI01001572

PATIENT
  Sex: Female
  Weight: 24.97 kg

DRUGS (2)
  1. VUMERITY [Suspect]
     Active Substance: DIROXIMEL FUMARATE
     Indication: MULTIPLE SCLEROSIS
     Dosage: TAKE 2 CAPSULES BY MOUTH EVERY 12 HOURS
     Route: 048
  2. FEMRING [Concomitant]
     Active Substance: ESTRADIOL ACETATE
     Route: 065

REACTIONS (1)
  - SARS-CoV-2 test positive [Recovered/Resolved]
